FAERS Safety Report 7705659-9 (Version None)
Quarter: 2011Q3

REPORT INFORMATION
  Report Type: 
  Country: None (occurrence: None)
  Receive Date: 20110823
  Receipt Date: 20110823
  Transmission Date: 20111222
  Serious: Yes (Hospitalization, Disabling, Other)
  Sender: FDA-Public Use
  Company Number: None

PATIENT
  Age: 29 Year
  Sex: Male
  Weight: 81.6475 kg

DRUGS (4)
  1. IBUPROFEN [Concomitant]
  2. CHLORPHENIRAMINE MALEATE [Concomitant]
  3. FLUTICASONE PROPIONATE [Suspect]
     Indication: EPISTAXIS
     Dosage: 2 SPRAY/PER NOSTRIL ONCE DAILY NASAL
     Route: 045
     Dates: start: 20081101
  4. FLUTICASONE PROPIONATE [Suspect]
     Indication: EPISTAXIS
     Dosage: 2 SPRAY/PER NOSTRIL ONCE DAILY NASAL
     Route: 045
     Dates: start: 20100501

REACTIONS (2)
  - NASAL SEPTUM DEVIATION [None]
  - FATIGUE [None]
